FAERS Safety Report 7604509-9 (Version None)
Quarter: 2011Q3

REPORT INFORMATION
  Report Type: 
  Country: None (occurrence: None)
  Receive Date: 20110712
  Receipt Date: 20110707
  Transmission Date: 20111222
  Serious: Yes (Other)
  Sender: FDA-Public Use
  Company Number: JP-PFIZER INC-2011148415

PATIENT
  Sex: Male

DRUGS (3)
  1. ALPRAZOLAM [Suspect]
     Indication: IRRITABLE BOWEL SYNDROME
     Dosage: 0.4 MG, 3X/DAY
     Route: 048
  2. RIZE [Concomitant]
     Indication: DIZZINESS
     Dosage: 5 MG, UNK
  3. RIZE [Concomitant]
     Indication: GAIT DISTURBANCE

REACTIONS (7)
  - INSOMNIA [None]
  - FEELING ABNORMAL [None]
  - DIZZINESS [None]
  - DRUG DEPENDENCE [None]
  - HYPOAESTHESIA ORAL [None]
  - CONVULSION [None]
  - GAIT DISTURBANCE [None]
